FAERS Safety Report 24804517 (Version 2)
Quarter: 2025Q3

REPORT INFORMATION
  Report Type: Spontaneous
  Country: US (occurrence: US)
  Receive Date: 20250103
  Receipt Date: 20250810
  Transmission Date: 20251021
  Serious: Yes (Other)
  Sender: ALEXION PHARMACEUTICALS
  Company Number: US-AstraZeneca-CH-00762545A

PATIENT
  Sex: Male

DRUGS (1)
  1. TAGRISSO [Suspect]
     Active Substance: OSIMERTINIB
     Indication: Product used for unknown indication
     Route: 065

REACTIONS (9)
  - Atrial fibrillation [Unknown]
  - Choking [Unknown]
  - Dyspnoea [Unknown]
  - Chest discomfort [Unknown]
  - Device malfunction [Unknown]
  - Acne [Unknown]
  - Oral pain [Unknown]
  - Dyschezia [Unknown]
  - Arthralgia [Unknown]
